FAERS Safety Report 15629506 (Version 2)
Quarter: 2019Q2

REPORT INFORMATION
  Report Type: Spontaneous
  Country: US (occurrence: US)
  Receive Date: 20181117
  Receipt Date: 20190517
  Transmission Date: 20190711
  Serious: No
  Sender: FDA-Public Use
  Company Number: US-CELLTRION INC.-2018US023233

PATIENT

DRUGS (1)
  1. INFLECTRA [Suspect]
     Active Substance: INFLIXIMAB-DYYB
     Indication: PSORIATIC ARTHROPATHY
     Dosage: UNK
     Route: 065
     Dates: start: 201805, end: 201805

REACTIONS (2)
  - Trichorrhexis [Unknown]
  - Fatigue [Unknown]

NARRATIVE: CASE EVENT DATE: 201805
